FAERS Safety Report 19438193 (Version 1)
Quarter: 2021Q2

REPORT INFORMATION
  Report Type: Spontaneous
  Country: FR (occurrence: FR)
  Receive Date: 20210618
  Receipt Date: 20210618
  Transmission Date: 20210717
  Serious: Yes (Life-Threatening)
  Sender: FDA-Public Use
  Company Number: FR-PFIZER INC-2021687192

PATIENT
  Age: 81 Year
  Sex: Male
  Weight: 72 kg

DRUGS (8)
  1. LEVODOPA [Concomitant]
     Active Substance: LEVODOPA
     Dosage: UNK
  2. EFFEXOR LP [Suspect]
     Active Substance: VENLAFAXINE HYDROCHLORIDE
     Dosage: UNK
     Route: 048
  3. FLECAINE [Concomitant]
     Active Substance: FLECAINIDE
     Dosage: UNK
  4. COUMADINE [Suspect]
     Active Substance: WARFARIN SODIUM
     Indication: AORTIC VALVE REPLACEMENT
     Dosage: 7.5 MG, 1X/DAY (YEARS)
     Route: 048
     Dates: end: 20210520
  5. AMLODIPINE [Concomitant]
     Active Substance: AMLODIPINE BESYLATE
     Dosage: UNK
  6. EZETROL [Concomitant]
     Active Substance: EZETIMIBE
     Dosage: UNK
  7. IRBESARTAN. [Concomitant]
     Active Substance: IRBESARTAN
     Dosage: UNK
  8. PERMIXON [Concomitant]
     Active Substance: HERBALS\SAW PALMETTO
     Dosage: UNK

REACTIONS (1)
  - Shock haemorrhagic [Recovered/Resolved]

NARRATIVE: CASE EVENT DATE: 20210520
